FAERS Safety Report 16617084 (Version 1)
Quarter: 2019Q3

REPORT INFORMATION
  Report Type: Spontaneous
  Country: US (occurrence: US)
  Receive Date: 20190723
  Receipt Date: 20190723
  Transmission Date: 20191004
  Serious: Yes (Other)
  Sender: FDA-Public Use
  Company Number: US-HQ SPECIALTY-US-2019INT000180

PATIENT

DRUGS (3)
  1. CISPLATIN. [Suspect]
     Active Substance: CISPLATIN
     Indication: OROPHARYNGEAL CANCER
     Dosage: 100 MG/ M2 ON DAY 1, 3 CYCLES, EVERY 21 DAYS
  2. DOCETAXEL. [Suspect]
     Active Substance: DOCETAXEL
     Indication: OROPHARYNGEAL CANCER
     Dosage: 75 MG/ M2, 3 CYCLES, EVERY 21 DAYS
  3. FLUOROURACIL. [Suspect]
     Active Substance: FLUOROURACIL
     Indication: OROPHARYNGEAL CANCER
     Dosage: 750 MG/M2 ? 4 DAYS, 3 CYCLES, EVERY 21 DAYS

REACTIONS (1)
  - Mucosal inflammation [Unknown]
